FAERS Safety Report 10418921 (Version 6)
Quarter: 2015Q4

REPORT INFORMATION
  Report Type: Report from Study
  Country: US (occurrence: US)
  Receive Date: 20140829
  Receipt Date: 20151019
  Transmission Date: 20160304
  Serious: Yes (Life-Threatening, Hospitalization)
  Sender: FDA-Public Use
  Company Number: US-ACTELION-A-US2014-104497

PATIENT
  Age: 65 Year
  Sex: Female

DRUGS (14)
  1. ADCIRCA [Concomitant]
     Active Substance: TADALAFIL
  2. NORCO [Concomitant]
     Active Substance: ACETAMINOPHEN\HYDROCODONE BITARTRATE
     Dosage: 5/325 MG QD
  3. CYMBALTA [Concomitant]
     Active Substance: DULOXETINE HYDROCHLORIDE
     Dosage: 60 MG, QD
  4. COUMADIN [Concomitant]
     Active Substance: WARFARIN SODIUM
  5. FISH OIL [Concomitant]
     Active Substance: FISH OIL
     Dosage: 1300 MG, QD
  6. LYRICA [Concomitant]
     Active Substance: PREGABALIN
     Dosage: 75 MG, BID
  7. PREVACID [Concomitant]
     Active Substance: LANSOPRAZOLE
     Dosage: 30 MG, QD
  8. VENTAVIS [Suspect]
     Active Substance: ILOPROST
     Dosage: UNK, 5X/DAY
     Route: 055
  9. ASPIRIN. [Concomitant]
     Active Substance: ASPIRIN
     Dosage: 81 MG, QD
  10. LANOXIN [Concomitant]
     Active Substance: DIGOXIN
     Dosage: 0.125 MG, QD
  11. VENTAVIS [Suspect]
     Active Substance: ILOPROST
     Indication: PULMONARY ARTERIAL HYPERTENSION
     Dosage: 5 MCG, 5-9 X/DAILY
     Route: 055
     Dates: start: 2008
  12. VENTAVIS [Suspect]
     Active Substance: ILOPROST
     Dosage: 5 MCG, 6-9 X/DAILY
     Route: 055
  13. LASIX [Concomitant]
     Active Substance: FUROSEMIDE
     Dosage: 40 MG, QD
  14. POTASSIUM CHLORIDE. [Concomitant]
     Active Substance: POTASSIUM CHLORIDE
     Dosage: 20 MEQ, QD

REACTIONS (16)
  - Haemoglobin decreased [Recovering/Resolving]
  - Hypotension [Recovering/Resolving]
  - Diarrhoea [Unknown]
  - Vision blurred [Unknown]
  - Procedural intestinal perforation [Recovering/Resolving]
  - Colostomy [Recovering/Resolving]
  - Alopecia [Unknown]
  - Haemorrhage [Recovering/Resolving]
  - Colonoscopy [Unknown]
  - Fluid retention [Unknown]
  - Tachycardia [Recovering/Resolving]
  - Oedema peripheral [Unknown]
  - Abscess oral [Unknown]
  - Constipation [Unknown]
  - Colitis [Unknown]
  - Anaemia [Recovering/Resolving]

NARRATIVE: CASE EVENT DATE: 20140718
